FAERS Safety Report 14990838 (Version 1)
Quarter: 2018Q2

REPORT INFORMATION
  Report Type: Spontaneous
  Country: US (occurrence: US)
  Receive Date: 20180608
  Receipt Date: 20180608
  Transmission Date: 20180711
  Serious: Yes (Other)
  Sender: FDA-Public Use
  Company Number: US-TEVA-2018-US-901488

PATIENT
  Sex: Female

DRUGS (1)
  1. KELNOR 1/35 [Suspect]
     Active Substance: ETHINYL ESTRADIOL\ETHYNODIOL DIACETATE
     Dosage: FORM STRENGTH: 1/35 (ETHYNODIOL DIACETATE AND ETHINYL ESTRADIOL TABLETS, USP).
     Route: 065

REACTIONS (1)
  - Intracranial venous sinus thrombosis [Unknown]
